FAERS Safety Report 7917510-2 (Version None)
Quarter: 2011Q4

REPORT INFORMATION
  Report Type: 
  Country: None (occurrence: None)
  Receive Date: 20111116
  Receipt Date: 20111107
  Transmission Date: 20120403
  Serious: Yes (Other)
  Sender: FDA-Public Use
  Company Number: JP-NAPPMUNDI-MAG-2011-0001767

PATIENT
  Age: 83 Year
  Sex: Female

DRUGS (1)
  1. BUPRENORPHINE [Suspect]
     Indication: SPINAL OSTEOARTHRITIS
     Dosage: 5 MCG, Q1H
     Route: 062
     Dates: start: 20110929, end: 20110929

REACTIONS (2)
  - HYPOAESTHESIA ORAL [None]
  - RASH GENERALISED [None]
